FAERS Safety Report 10525392 (Version 1)
Quarter: 2014Q4

REPORT INFORMATION
  Report Type: Spontaneous
  Country: US (occurrence: US)
  Receive Date: 20141017
  Receipt Date: 20141017
  Transmission Date: 20150528
  Serious: Yes (Hospitalization)
  Sender: FDA-Public Use
  Company Number: US-SA-2014SA139782

PATIENT
  Age: 69 Year
  Sex: Female

DRUGS (1)
  1. LANTUS SOLOSTAR [Suspect]
     Active Substance: INSULIN GLARGINE
     Indication: TYPE 2 DIABETES MELLITUS
     Dosage: DOSE: 8-12 UNITS
     Route: 065
     Dates: start: 2007

REACTIONS (3)
  - Blood glucose abnormal [Not Recovered/Not Resolved]
  - Hepatic cancer [Recovered/Resolved]
  - Hospitalisation [Unknown]
